FAERS Safety Report 5698010-X (Version None)
Quarter: 2008Q2

REPORT INFORMATION
  Report Type: 
  Country: None (occurrence: None)
  Receive Date: 20080408
  Receipt Date: 20080327
  Transmission Date: 20081010
  Serious: Yes (Other)
  Sender: FDA-Public Use
  Company Number: US-ELI_LILLY_AND_COMPANY-US200803006214

PATIENT
  Sex: Female

DRUGS (1)
  1. HUMULIN N [Suspect]
     Indication: DIABETES MELLITUS

REACTIONS (6)
  - BLINDNESS [None]
  - CARDIAC OPERATION [None]
  - EYE HAEMORRHAGE [None]
  - HYPERSENSITIVITY [None]
  - RETINAL DETACHMENT [None]
  - RETINAL SCAR [None]
